FAERS Safety Report 4958785-1 (Version None)
Quarter: 2006Q1

REPORT INFORMATION
  Report Type: 
  Country: None (occurrence: None)
  Receive Date: 20060127
  Receipt Date: 20041229
  Transmission Date: 20060701
  Serious: Yes (Other)
  Sender: FDA-Public Use
  Company Number: 04-12-1820

PATIENT
  Age: 56 Year
  Sex: Male

DRUGS (1)
  1. CLOZAPINE [Suspect]
     Dosage: 1100MG QD, ORAL
     Route: 048
     Dates: start: 19980101, end: 20041228

REACTIONS (1)
  - AGRANULOCYTOSIS [None]
